FAERS Safety Report 25435481 (Version 1)
Quarter: 2025Q2

REPORT INFORMATION
  Report Type: Spontaneous
  Country: ZA (occurrence: ZA)
  Receive Date: 20250613
  Receipt Date: 20250613
  Transmission Date: 20250716
  Serious: Yes (Other)
  Sender: PFIZER
  Company Number: ZA-PFIZER INC-202500118375

PATIENT
  Age: 66 Year
  Sex: Female

DRUGS (6)
  1. METHOTREXATE SODIUM [Suspect]
     Active Substance: METHOTREXATE SODIUM
     Indication: Rheumatoid arthritis
     Dosage: UNK, WEEKLY
     Route: 058
     Dates: start: 202310, end: 202402
  2. PREDNISONE [Concomitant]
     Active Substance: PREDNISONE
     Dosage: 7.5 MG, DAILY
     Dates: start: 202310, end: 202403
  3. HUMIRA [Concomitant]
     Active Substance: ADALIMUMAB
     Dosage: 40 MG, 2X/WEEK, (BIOLOGIC)
     Route: 058
     Dates: start: 202311
  4. ETORICOXIB [Concomitant]
     Active Substance: ETORICOXIB
     Dosage: 30 MG, DAILY
     Dates: start: 202408
  5. LEFLUNOMIDE [Concomitant]
     Active Substance: LEFLUNOMIDE
     Dosage: 20 MG, DAILY
     Dates: start: 202308
  6. CHLOROQUINE [Concomitant]
     Active Substance: CHLOROQUINE
     Dates: start: 202307

REACTIONS (3)
  - Osteonecrosis [Unknown]
  - Synovitis [Unknown]
  - Toxicity to various agents [Unknown]
